FAERS Safety Report 12860546 (Version 1)
Quarter: 2016Q4

REPORT INFORMATION
  Report Type: Spontaneous
  Country: CH (occurrence: CH)
  Receive Date: 20161019
  Receipt Date: 20161019
  Transmission Date: 20170207
  Serious: Yes (Hospitalization)
  Sender: FDA-Public Use
  Company Number: CH-ROCHE-1843481

PATIENT
  Age: 80 Year
  Sex: Female
  Weight: 52.6 kg

DRUGS (3)
  1. ELOXATIN [Suspect]
     Active Substance: OXALIPLATIN
     Indication: PRODUCT USED FOR UNKNOWN INDICATION
     Dosage: THERAPY STARTED IN JUNE, PERFORMED AT 9:09:16 3 CYCLES OF CHEMOTHERAPY. NOT KNOWN DOSAGE.
     Route: 040
     Dates: start: 20160627, end: 20160909
  2. EUTHYROX [Concomitant]
     Active Substance: LEVOTHYROXINE SODIUM
     Route: 048
  3. XELODA [Suspect]
     Active Substance: CAPECITABINE
     Indication: PRODUCT USED FOR UNKNOWN INDICATION
     Dosage: FILM COATED TABLET?THERAPY STARTED IN JUNE, AT 09:09:16 PERFORMED 3 CYCLES. AT EACH CYCLE THEY WERE
     Route: 048
     Dates: start: 20160627, end: 20160909

REACTIONS (2)
  - Gait disturbance [Recovering/Resolving]
  - Polyneuropathy [Recovering/Resolving]

NARRATIVE: CASE EVENT DATE: 20160906
